FAERS Safety Report 19079161 (Version 1)
Quarter: 2021Q1

REPORT INFORMATION
  Report Type: Spontaneous
  Country: US (occurrence: US)
  Receive Date: 20210331
  Receipt Date: 20210331
  Transmission Date: 20210420
  Serious: Yes (Other)
  Sender: FDA-Public Use
  Company Number: US-ORGANON-O2103USA003102

PATIENT
  Age: 12 Year
  Sex: Female
  Weight: 123 kg

DRUGS (4)
  1. NEXPLANON [Suspect]
     Active Substance: ETONOGESTREL
     Indication: MENORRHAGIA
     Dosage: 68 MILLIGRAM, ONCE, LEFT ARM; IMPLANT WAS PLACED ?NEAR? THE SULCUS OF THE ARM
     Route: 059
     Dates: start: 201902, end: 20201123
  2. DEXTROAMPHETAMINE HYDROCHLORIDE [Concomitant]
     Active Substance: DEXTROAMPHETAMINE HYDROCHLORIDE
     Dosage: UNK
  3. FLUOXETINE [Concomitant]
     Active Substance: FLUOXETINE HYDROCHLORIDE
     Dosage: UNK
  4. IRON COMPOUND [Concomitant]
     Active Substance: IRON
     Dosage: UNK

REACTIONS (6)
  - Implant site pain [Not Recovered/Not Resolved]
  - Implant site pruritus [Not Recovered/Not Resolved]
  - Device placement issue [Recovered/Resolved]
  - Medical device site discomfort [Not Recovered/Not Resolved]
  - Device dislocation [Recovered/Resolved]
  - Product use in unapproved indication [Unknown]

NARRATIVE: CASE EVENT DATE: 201902
